FAERS Safety Report 25978972 (Version 2)
Quarter: 2025Q4

REPORT INFORMATION
  Report Type: Report from Study
  Country: US (occurrence: US)
  Receive Date: 20251030
  Receipt Date: 20251113
  Transmission Date: 20260118
  Serious: Yes (Other)
  Sender: TEVA
  Company Number: US-TEVA-VS-3386441

PATIENT
  Age: 65 Year
  Sex: Male

DRUGS (2)
  1. AUSTEDO XR [Suspect]
     Active Substance: DEUTETRABENAZINE
     Indication: Tardive dyskinesia
     Dosage: QDAY
     Route: 048
     Dates: start: 20250824
  2. DOXEPIN [Suspect]
     Active Substance: DOXEPIN
     Indication: Product used for unknown indication
     Route: 065
     Dates: start: 20251103

REACTIONS (8)
  - Self-injurious ideation [Unknown]
  - Dyspnoea [Unknown]
  - Somnolence [Unknown]
  - Palpitations [Unknown]
  - Depression [Unknown]
  - Aggression [Unknown]
  - Confusional state [Unknown]
  - Insomnia [Unknown]

NARRATIVE: CASE EVENT DATE: 20250101
